FAERS Safety Report 23708029 (Version 2)
Quarter: 2024Q2

REPORT INFORMATION
  Report Type: Report from Study
  Country: US (occurrence: US)
  Receive Date: 20240404
  Receipt Date: 20240415
  Transmission Date: 20240717
  Serious: No
  Sender: FDA-Public Use
  Company Number: US-ALXN-202403USA001928US

PATIENT
  Sex: Female

DRUGS (1)
  1. STRENSIQ [Suspect]
     Active Substance: ASFOTASE ALFA
     Indication: Phosphorus metabolism disorder
     Dosage: UNK
     Route: 065

REACTIONS (10)
  - Blood phosphorus increased [Unknown]
  - Blood parathyroid hormone decreased [Unknown]
  - Blood calcium increased [Unknown]
  - Creatinine urine decreased [Unknown]
  - Arthralgia [Unknown]
  - Myalgia [Unknown]
  - Abdominal pain [Unknown]
  - Affective disorder [Unknown]
  - Psychomotor hyperactivity [Unknown]
  - Disturbance in attention [Unknown]

NARRATIVE: CASE EVENT DATE: 20240301
